FAERS Safety Report 9095223 (Version 1)
Quarter: 2013Q1

REPORT INFORMATION
  Report Type: Spontaneous
  Country: GB (occurrence: None)
  Receive Date: 20130123
  Receipt Date: 20130123
  Transmission Date: 20140127
  Serious: Yes (Hospitalization)
  Sender: FDA-Public Use
  Company Number: AUR-APL-2013-00402

PATIENT
  Sex: Female

DRUGS (1)
  1. QUETIAPINE (QUETIAPINE) (QUETIAPINE) [Suspect]
     Indication: PRODUCT USED FOR UNKNOWN INDICATION
     Dates: start: 201212

REACTIONS (6)
  - Influenza like illness [None]
  - Loss of consciousness [None]
  - Muscle twitching [None]
  - Pain [None]
  - Feeling abnormal [None]
  - Viral infection [None]
